FAERS Safety Report 8523491-3 (Version None)
Quarter: 2012Q3

REPORT INFORMATION
  Report Type: 
  Country: None (occurrence: None)
  Receive Date: 20120720
  Receipt Date: 20120711
  Transmission Date: 20120928
  Serious: Yes (Other)
  Sender: FDA-Public Use
  Company Number: CA-JNJFOC-20120705726

PATIENT
  Sex: Female
  Weight: 80 kg

DRUGS (13)
  1. REMICADE [Suspect]
     Indication: RHEUMATOID ARTHRITIS
     Route: 042
     Dates: start: 20030401
  2. METHOTREXATE [Concomitant]
     Route: 065
  3. ALL OTHER THERAPEUTIC PRODUCTS [Concomitant]
     Route: 065
  4. RABEPRAZOLE SODIUM [Concomitant]
     Route: 065
  5. CELEBREX [Concomitant]
     Route: 065
  6. METFORMIN HYDROCHLORIDE [Concomitant]
     Route: 065
  7. ADALAT [Concomitant]
     Route: 065
  8. OXYCODONE HCL [Concomitant]
     Route: 065
  9. PREMARIN [Concomitant]
     Route: 065
  10. ACTONEL [Concomitant]
     Route: 065
  11. TYLENOL W/ CODEINE NO. 3 [Concomitant]
     Route: 065
  12. DIAMICRON [Concomitant]
     Route: 065
  13. ASPIRIN [Concomitant]
     Route: 065

REACTIONS (2)
  - FALL [None]
  - RIB FRACTURE [None]
